FAERS Safety Report 15356639 (Version 1)
Quarter: 2018Q3

REPORT INFORMATION
  Report Type: Spontaneous
  Country: CA (occurrence: CA)
  Receive Date: 20180906
  Receipt Date: 20180906
  Transmission Date: 20181010
  Serious: Yes (Hospitalization, Disabling, Other)
  Sender: FDA-Public Use
  Company Number: CA-PFIZER INC-2018354955

PATIENT
  Age: 12 Year
  Sex: Female
  Weight: 22 kg

DRUGS (2)
  1. SOMATROPIN. [Suspect]
     Active Substance: SOMATROPIN
     Indication: GROWTH RETARDATION
     Dosage: 1.2 MG, UNK
     Route: 058
  2. CHOLECALCIFEROL [Concomitant]
     Active Substance: CHOLECALCIFEROL
     Indication: VITAMIN D DEFICIENCY
     Dosage: 2000 IU, UNK
     Route: 065

REACTIONS (1)
  - Epiphysiolysis [Recovered/Resolved]
